FAERS Safety Report 5342230-0 (Version None)
Quarter: 2007Q2

REPORT INFORMATION
  Report Type: 
  Country: None (occurrence: None)
  Receive Date: 20070601
  Receipt Date: 20070524
  Transmission Date: 20071010
  Serious: Yes (Hospitalization)
  Sender: FDA-Public Use
  Company Number: JP-ROCHE-491678

PATIENT
  Age: 57 Year
  Sex: Male
  Weight: 63.7 kg

DRUGS (5)
  1. CAPECITABINE [Suspect]
     Route: 048
     Dates: start: 20070426
  2. CAPECITABINE [Suspect]
     Route: 048
     Dates: end: 20070405
  3. CAPECITABINE [Suspect]
     Dosage: GIVEN ON DAYS 1-15 ON EACH 3-WEEK-CYCLE.
     Route: 048
     Dates: start: 20060721
  4. BEVACIZUMAB [Suspect]
     Dosage: GIVEN ON DAY ONE OF EACH 3-WEEK-CYCLE.
     Route: 042
     Dates: start: 20060721
  5. OXALIPLATIN [Suspect]
     Dosage: GIVEN ON DAY ONE OF EACH 3-WEEK-CYCLE.
     Route: 042
     Dates: start: 20060721

REACTIONS (2)
  - DIARRHOEA [None]
  - ENTERITIS INFECTIOUS [None]
